FAERS Safety Report 5507551-7 (Version None)
Quarter: 2007Q4

REPORT INFORMATION
  Report Type: 
  Country: None (occurrence: None)
  Receive Date: 20071102
  Receipt Date: 20071022
  Transmission Date: 20080405
  Serious: Yes (Other)
  Sender: FDA-Public Use
  Company Number: S07-FRA-05619-01

PATIENT
  Sex: Female

DRUGS (3)
  1. PROPESS (DINOPROSTONE) [Suspect]
     Indication: LABOUR INDUCTION
     Dosage: 10 MG ONCE VG
     Dates: start: 20060723, end: 20060723
  2. SYNTOCINON [Concomitant]
  3. EPIDURAL ANESTHETIC DRUG [Concomitant]

REACTIONS (5)
  - BRADYCARDIA FOETAL [None]
  - CAESAREAN SECTION [None]
  - DRUG EXPOSURE DURING PREGNANCY [None]
  - INTRA-UTERINE DEATH [None]
  - UTERINE HYPERTONUS [None]
